FAERS Safety Report 7054565-4 (Version None)
Quarter: 2010Q4

REPORT INFORMATION
  Report Type: 
  Country: None (occurrence: None)
  Receive Date: 20101020
  Receipt Date: 20101007
  Transmission Date: 20110411
  Serious: Yes (Other)
  Sender: FDA-Public Use
  Company Number: JP-ELI_LILLY_AND_COMPANY-JP201008003953

PATIENT
  Age: 45 Year
  Sex: Female

DRUGS (1)
  1. CYMBALTA [Suspect]
     Indication: DEPRESSION
     Dosage: 40 MG, DAILY (1/D)
     Route: 048
     Dates: start: 20100628, end: 20100704

REACTIONS (3)
  - NAUSEA [None]
  - PAROSMIA [None]
  - WHITE BLOOD CELL COUNT DECREASED [None]
